FAERS Safety Report 9996603 (Version 2)
Quarter: 2014Q1

REPORT INFORMATION
  Report Type: Spontaneous
  Country: US (occurrence: US)
  Receive Date: 20140311
  Receipt Date: 20140324
  Transmission Date: 20141002
  Serious: Yes (Other)
  Sender: FDA-Public Use
  Company Number: US-SA-2014SA030208

PATIENT
  Sex: Female

DRUGS (2)
  1. LOVENOX [Suspect]
     Indication: ACCIDENTAL EXPOSURE TO PRODUCT
     Dosage: STRENGTH: 30MG/0,3ML
     Route: 065
  2. LOVENOX [Suspect]
     Indication: ACCIDENTAL EXPOSURE TO PRODUCT
     Dosage: STRENGTH: 30MG/0,3ML
     Route: 065

REACTIONS (1)
  - Injury associated with device [Unknown]
